FAERS Safety Report 4726113-2 (Version None)
Quarter: 2005Q3

REPORT INFORMATION
  Report Type: 
  Country: None (occurrence: None)
  Receive Date: 20050725
  Receipt Date: 20050714
  Transmission Date: 20060218
  Serious: Yes (Other)
  Sender: FDA-Public Use
  Company Number: UKP05000246

PATIENT
  Age: 36 Year
  Sex: Male

DRUGS (2)
  1. ASACOL [Suspect]
     Indication: PROCTITIS
     Dosage: 800 MG, 2/DAY, ORAL
     Route: 048
     Dates: start: 19980101, end: 20020101
  2. PREDNISONE [Concomitant]

REACTIONS (2)
  - SPERM COUNT ABNORMAL [None]
  - SPERMATOZOA ABNORMAL [None]
